FAERS Safety Report 20026138 (Version 1)
Quarter: 2021Q4

REPORT INFORMATION
  Report Type: Spontaneous
  Country: AU (occurrence: AU)
  Receive Date: 20211102
  Receipt Date: 20211102
  Transmission Date: 20220303
  Serious: Yes (Other)
  Sender: FDA-Public Use
  Company Number: AU-BRISTOL-MYERS SQUIBB COMPANY-BMS-2021-113565

PATIENT
  Age: 74 Year
  Sex: Female
  Weight: 78 kg

DRUGS (4)
  1. ELIQUIS [Suspect]
     Active Substance: APIXABAN
     Indication: Cerebrovascular accident prophylaxis
     Dosage: 5 MILLIGRAM, BID
     Route: 048
  2. PANADOL [Concomitant]
     Active Substance: ACETAMINOPHEN
     Indication: Product used for unknown indication
     Dosage: 6 TAB, TID
     Route: 065
  3. MULTI B [BIOTIN;CHOLINE BITARTRATE;CYANOCOBALAMIN;FOLIC ACID;INOSITOL; [Concomitant]
     Indication: Product used for unknown indication
     Dosage: UNK
     Route: 065
  4. PROPRANOLOL [Concomitant]
     Active Substance: PROPRANOLOL HYDROCHLORIDE
     Indication: Stress
     Dosage: 10 MILLIGRAM, BID
     Route: 065

REACTIONS (10)
  - Breast cancer [Unknown]
  - Atrial fibrillation [Unknown]
  - Arthropathy [Unknown]
  - Dyspnoea [Unknown]
  - Emphysema [Unknown]
  - Rash pruritic [Unknown]
  - Gastric disorder [Unknown]
  - Blood pressure fluctuation [Unknown]
  - Blood creatinine increased [Unknown]
  - Weight increased [Unknown]

NARRATIVE: CASE EVENT DATE: 20211025
